FAERS Safety Report 10052460 (Version 2)
Quarter: 2014Q2

REPORT INFORMATION
  Report Type: Report from Study
  Country: GB (occurrence: GB)
  Receive Date: 20140402
  Receipt Date: 20140402
  Transmission Date: 20141212
  Serious: Yes (Hospitalization)
  Sender: FDA-Public Use
  Company Number: GB-AMGEN-GBRCT2012023105

PATIENT
  Age: 63 Year
  Sex: Female
  Weight: 61 kg

DRUGS (13)
  1. ETANERCEPT [Suspect]
     Indication: RHEUMATOID ARTHRITIS
     Dosage: 25 MG, 2 TIMES/WK
     Route: 065
     Dates: start: 20040811
  2. BENDROFLUAZIDE [Concomitant]
     Dosage: UNK
  3. DILTIAZEM [Concomitant]
     Dosage: UNK
  4. PAROXETINE [Concomitant]
     Dosage: UNK
  5. FOLIC ACID [Concomitant]
     Dosage: UNK
  6. METHOTREXATE [Concomitant]
     Dosage: UNK
  7. PAMIDRONATE DISODIUM [Concomitant]
     Dosage: 3 DF, MONTHLY
  8. IMODIUM [Concomitant]
     Dosage: UNK
  9. CO-CODAMOL [Concomitant]
     Dosage: UNK
  10. DICLOFENAC [Concomitant]
     Dosage: UNK
  11. PREDNISOLONE [Concomitant]
     Dosage: 5 MG, 1X/DAY
  12. CALCICHEW-D3 [Concomitant]
     Dosage: UNK
  13. OMEPRAZOLE [Concomitant]
     Dosage: UNK

REACTIONS (1)
  - Presyncope [Unknown]
